FAERS Safety Report 4461693-6 (Version None)
Quarter: 2004Q3

REPORT INFORMATION
  Report Type: 
  Country: None (occurrence: None)
  Receive Date: 20040929
  Receipt Date: 20040714
  Transmission Date: 20050211
  Serious: Yes (Death, Other)
  Sender: FDA-Public Use
  Company Number: 200417063GDDC

PATIENT
  Age: 61 Year
  Sex: Male

DRUGS (8)
  1. LANTUS [Suspect]
     Indication: DIABETES MELLITUS INSULIN-DEPENDENT
     Dosage: DOSE: 14-18; DOSE UNIT: UNITS
     Route: 058
     Dates: start: 20030501, end: 20040715
  2. AMLODIPINE [Concomitant]
  3. ROFECOXIB [Concomitant]
     Route: 048
  4. LORAZEPAM [Concomitant]
  5. CELAPRAM [Concomitant]
     Route: 048
  6. BACLOFEN [Concomitant]
     Route: 048
  7. RILUZOLE [Concomitant]
  8. COPROXAMOL [Concomitant]
     Route: 048

REACTIONS (1)
  - AMYOTROPHIC LATERAL SCLEROSIS [None]
